FAERS Safety Report 23659003 (Version 6)
Quarter: 2024Q3

REPORT INFORMATION
  Report Type: Spontaneous
  Country: US (occurrence: US)
  Receive Date: 20240321
  Receipt Date: 20240920
  Transmission Date: 20241017
  Serious: Yes (Other)
  Sender: BRISTOL MYERS SQUIBB
  Company Number: US-BRISTOL-MYERS SQUIBB COMPANY-2024-044728

PATIENT
  Age: 93 Year
  Sex: Male

DRUGS (4)
  1. REVLIMID [Suspect]
     Active Substance: LENALIDOMIDE
     Indication: Plasma cell myeloma
     Route: 048
  2. REVLIMID [Suspect]
     Active Substance: LENALIDOMIDE
     Route: 048
  3. REVLIMID [Suspect]
     Active Substance: LENALIDOMIDE
     Route: 048
  4. REVLIMID [Suspect]
     Active Substance: LENALIDOMIDE
     Dosage: TAKE 1 CAPSULE BY MOUTH EVERY DAY
     Route: 048

REACTIONS (4)
  - Rash [Not Recovered/Not Resolved]
  - Product dose omission issue [Not Recovered/Not Resolved]
  - Renal impairment [Not Recovered/Not Resolved]
  - Neck pain [Recovered/Resolved]

NARRATIVE: CASE EVENT DATE: 20240331
